FAERS Safety Report 9524333 (Version 1)
Quarter: 2013Q3

REPORT INFORMATION
  Report Type: Spontaneous
  Country: US (occurrence: US)
  Receive Date: 20130916
  Receipt Date: 20130916
  Transmission Date: 20140515
  Serious: No
  Sender: FDA-Public Use
  Company Number: US-MYLANLABS-2012S1019637

PATIENT
  Age: 64 Year
  Sex: Female

DRUGS (1)
  1. NITROFURANTOIN CAPSULES, USP (MACROCRYSTALS) [Suspect]
     Indication: URINARY TRACT INFECTION
     Route: 048
     Dates: start: 20120914

REACTIONS (3)
  - Hypersensitivity [Not Recovered/Not Resolved]
  - Oropharyngeal pain [Not Recovered/Not Resolved]
  - Dysphonia [Not Recovered/Not Resolved]
